FAERS Safety Report 8594249-4 (Version None)
Quarter: 2012Q3

REPORT INFORMATION
  Report Type: 
  Country: None (occurrence: None)
  Receive Date: 20120815
  Receipt Date: 20120809
  Transmission Date: 20120928
  Serious: No
  Sender: FDA-Public Use
  Company Number: US-009507513-1208USA004724

PATIENT

DRUGS (2)
  1. LYRICA [Concomitant]
  2. SAPHRIS [Suspect]
     Indication: BIPOLAR DISORDER
     Dosage: 15 MG, QD(ONE 10 MG IN THE EVENING AND 5 MG IN THE MORNING)
     Route: 060

REACTIONS (1)
  - VOMITING [None]
